FAERS Safety Report 9501280 (Version 1)
Quarter: 2013Q1

REPORT INFORMATION
  Report Type: Spontaneous
  Country: US (occurrence: None)
  Receive Date: 20130107
  Receipt Date: 20130107
  Transmission Date: 20140127
  Serious: No
  Sender: FDA-Public Use
  Company Number: PHEH2012US021515

PATIENT
  Age: 34 Year
  Sex: Female

DRUGS (3)
  1. GILENYA [Suspect]
     Indication: MULTIPLE SCLEROSIS
     Route: 048
     Dates: start: 20120217
  2. VITAMIN D (ERGOCALCIFEROL) [Concomitant]
  3. NAPROXEN (NAPROXEN) [Concomitant]

REACTIONS (7)
  - Hypoaesthesia [None]
  - Conjunctivitis infective [None]
  - Pain in extremity [None]
  - Visual impairment [None]
  - Rash [None]
  - Paraesthesia [None]
  - Headache [None]
